FAERS Safety Report 5130993-9 (Version None)
Quarter: 2006Q4

REPORT INFORMATION
  Report Type: 
  Country: None (occurrence: None)
  Receive Date: 20060829
  Receipt Date: 20060712
  Transmission Date: 20070319
  Serious: Yes (Other)
  Sender: FDA-Public Use
  Company Number: PHEH2006US08934

PATIENT
  Age: 80 Year
  Sex: Male

DRUGS (7)
  1. EXJADE [Suspect]
     Indication: BLOOD IRON INCREASED
     Dosage: 500 MG, QD, ORAL
     Route: 048
     Dates: start: 20060626, end: 20060703
  2. ARANESP [Concomitant]
  3. NEUPOGEN [Concomitant]
  4. ZOCOR [Concomitant]
  5. FUROSEMIDE [Concomitant]
  6. DIGOXIN [Concomitant]
  7. TOPROL-XL [Concomitant]

REACTIONS (5)
  - DYSPNOEA [None]
  - RASH ERYTHEMATOUS [None]
  - RASH GENERALISED [None]
  - SWELLING FACE [None]
  - URTICARIA GENERALISED [None]
